FAERS Safety Report 16202137 (Version 1)
Quarter: 2019Q2

REPORT INFORMATION
  Report Type: Report from Study
  Country: DE (occurrence: DE)
  Receive Date: 20190416
  Receipt Date: 20190416
  Transmission Date: 20190711
  Serious: Yes (Death, Hospitalization)
  Sender: FDA-Public Use
  Company Number: DE-ACTELION-A-CH2018-181825

PATIENT
  Age: 18 Month
  Sex: Male
  Weight: 9.04 kg

DRUGS (2)
  1. ZAVESCA [Suspect]
     Active Substance: MIGLUSTAT
     Indication: LIPIDOSIS
     Dosage: 10 MG/KG
     Route: 048
     Dates: start: 201810
  2. ZAVESCA [Suspect]
     Active Substance: MIGLUSTAT
     Dosage: 18 MG/KG
     Route: 048
     Dates: start: 201810

REACTIONS (2)
  - Lipidosis [Fatal]
  - Epilepsy [Unknown]

NARRATIVE: CASE EVENT DATE: 201811
